FAERS Safety Report 20022724 (Version 1)
Quarter: 2021Q4

REPORT INFORMATION
  Report Type: Spontaneous
  Country: US (occurrence: US)
  Receive Date: 20211102
  Receipt Date: 20211102
  Transmission Date: 20220303
  Serious: No
  Sender: FDA-Public Use
  Company Number: US-APOTEX-2021AP009231

PATIENT
  Age: 59 Year
  Sex: Male

DRUGS (3)
  1. PRAVASTATIN [Suspect]
     Active Substance: PRAVASTATIN
     Indication: Product used for unknown indication
     Dosage: 40 MILLIGRAM, Q.H.S.
     Route: 065
     Dates: start: 20200814
  2. XTANDI [Suspect]
     Active Substance: ENZALUTAMIDE
     Indication: Prostate cancer
     Dosage: 160 MILLIGRAM, Q.H.S.
     Route: 048
     Dates: start: 202004
  3. XTANDI [Suspect]
     Active Substance: ENZALUTAMIDE
     Indication: Metastases to bone

REACTIONS (3)
  - Bone pain [Recovering/Resolving]
  - Vitamin D decreased [Unknown]
  - Diarrhoea [Unknown]

NARRATIVE: CASE EVENT DATE: 20200801
